FAERS Safety Report 6712738-1 (Version None)
Quarter: 2010Q2

REPORT INFORMATION
  Report Type: 
  Country: None (occurrence: None)
  Receive Date: 20100506
  Receipt Date: 20100429
  Transmission Date: 20101027
  Serious: Yes (Hospitalization)
  Sender: FDA-Public Use
  Company Number: US-EISAI INC.-E7272-00056-SPO-US

PATIENT
  Sex: Female

DRUGS (1)
  1. ONTAK [Suspect]
     Dosage: UNKNOWN
     Route: 042
     Dates: start: 20100401, end: 20100424

REACTIONS (2)
  - CAPILLARY LEAK SYNDROME [None]
  - SEPSIS [None]
